FAERS Safety Report 21839345 (Version 1)
Quarter: 2023Q1

REPORT INFORMATION
  Report Type: Spontaneous
  Country: US (occurrence: US)
  Receive Date: 20230109
  Receipt Date: 20230109
  Transmission Date: 20230418
  Serious: No
  Sender: FDA-Public Use
  Company Number: US-GALDERMA-US2022003115

PATIENT
  Age: 63 Year
  Sex: Female

DRUGS (2)
  1. METRONIDAZOLE [Suspect]
     Active Substance: METRONIDAZOLE
     Dosage: 1 DOSAGE FORM
     Route: 061
  2. COSMETICS [Suspect]
     Active Substance: COSMETICS
     Indication: Rosacea
     Dosage: 1 DOSAGE FORM, TWICE
     Route: 061
     Dates: start: 20220315, end: 20220316

REACTIONS (3)
  - Application site pain [Not Recovered/Not Resolved]
  - Application site warmth [Not Recovered/Not Resolved]
  - Eye irritation [Not Recovered/Not Resolved]

NARRATIVE: CASE EVENT DATE: 20220315
